FAERS Safety Report 10283458 (Version 1)
Quarter: 2014Q3

REPORT INFORMATION
  Report Type: Spontaneous
  Country: US (occurrence: None)
  Receive Date: 20140702
  Receipt Date: 20140702
  Transmission Date: 20150326
  Serious: Yes (Hospitalization)
  Sender: FDA-Public Use
  Company Number: None

PATIENT
  Age: 43 Year
  Sex: Male
  Weight: 85.8 kg

DRUGS (2)
  1. PREDNISONE. [Concomitant]
     Active Substance: PREDNISONE
  2. RITUXIMAB [Suspect]
     Active Substance: RITUXIMAB
     Indication: PRODUCT USED FOR UNKNOWN INDICATION
     Dosage: 75MG/M2, ONCE, IVPB (GIVEN ON DAY 15 PER)?5/29/14 X 1 INFUSED OVER 6H
     Dates: start: 20140529

REACTIONS (3)
  - Haematuria [None]
  - Haemorrhage [None]
  - Pyrexia [None]

NARRATIVE: CASE EVENT DATE: 20140612
